FAERS Safety Report 7015295-8 (Version None)
Quarter: 2010Q3

REPORT INFORMATION
  Report Type: 
  Country: None (occurrence: None)
  Receive Date: 20100927
  Receipt Date: 20100920
  Transmission Date: 20110219
  Serious: Yes (Life-Threatening, Hospitalization)
  Sender: FDA-Public Use
  Company Number: GB-US-EMD SERONO, INC.-230172K09GBR

PATIENT
  Sex: Male

DRUGS (4)
  1. REBIF [Suspect]
     Indication: PRODUCT USED FOR UNKNOWN INDICATION
     Route: 058
     Dates: start: 20000101
  2. REBIF [Suspect]
  3. PHENYLBUTAZONE [Concomitant]
     Route: 048
  4. NSAIDS [Concomitant]
     Indication: ANKYLOSING SPONDYLITIS

REACTIONS (3)
  - DRUG INTOLERANCE [None]
  - INFLUENZA LIKE ILLNESS [None]
  - MYOCARDIAL INFARCTION [None]
